FAERS Safety Report 9248265 (Version 1)
Quarter: 2013Q1

REPORT INFORMATION
  Report Type: Spontaneous
  Country: US (occurrence: None)
  Receive Date: 20130305
  Receipt Date: 20130305
  Transmission Date: 20140127
  Serious: Yes (Other)
  Sender: FDA-Public Use
  Company Number: 163-21880-12060699

PATIENT
  Age: 69 Year
  Sex: Male

DRUGS (7)
  1. REVLIMID [Suspect]
     Indication: PLASMA CELL MYELOMA
     Dosage: 25 MG, X 21 DAYS, PO
     Dates: start: 20120306
  2. ASPIRIN LOW DOSE (ACETYLSALICYLIC ACID) [Concomitant]
  3. OMEPRAZOLE (OMEPRAZOLE) [Concomitant]
  4. SIMVASTATIN (SIMVASTATIN) [Concomitant]
  5. DEXAMETHASONE (DEXAMETHASONE) [Concomitant]
  6. CALCIUM 500+D (CALCIUM D3 ^STADA^) [Concomitant]
  7. LISINOPRIL (LISINOPRIL) [Concomitant]

REACTIONS (5)
  - White blood cell count decreased [None]
  - Red blood cell count decreased [None]
  - Ear infection [None]
  - Eye infection [None]
  - Drug ineffective [None]
